FAERS Safety Report 4844560-5 (Version None)
Quarter: 2005Q4

REPORT INFORMATION
  Report Type: 
  Country: None (occurrence: None)
  Receive Date: 20051130
  Receipt Date: 20051130
  Transmission Date: 20060501
  Serious: Yes (Other)
  Sender: FDA-Public Use
  Company Number: None

PATIENT
  Sex: Female
  Weight: 68.63 kg

DRUGS (11)
  1. DEPAKOTE ER [Suspect]
     Indication: BIPOLAR DISORDER
     Dosage: 1500 MG BID
     Dates: start: 20050304, end: 20050421
  2. PREVACID [Concomitant]
  3. MULTI-VITAMIN [Concomitant]
  4. FOLIC ACID [Concomitant]
  5. ZOCOR [Concomitant]
  6. DOCUSATE [Concomitant]
  7. CLONAZEPAM [Concomitant]
  8. VENLAFAXINE HCL [Concomitant]
  9. TRAZODONE HCL [Concomitant]
  10. LITHIUM [Concomitant]
  11. SEROQUEL [Concomitant]

REACTIONS (3)
  - AMMONIA INCREASED [None]
  - CONFUSIONAL STATE [None]
  - SEDATION [None]
